FAERS Safety Report 9949033 (Version 2)
Quarter: 2014Q2

REPORT INFORMATION
  Report Type: Spontaneous
  Country: US (occurrence: None)
  Receive Date: 20140122
  Receipt Date: 20140421
  Transmission Date: 20141212
  Serious: Yes (Other)
  Sender: FDA-Public Use
  Company Number: AEGR000171

PATIENT
  Age: 81 Year
  Sex: Female
  Weight: 63.9 kg

DRUGS (3)
  1. JUXTAPID (LOMITAPIDE) CAPSULE, 5MG [Suspect]
     Indication: TYPE IIA HYPERLIPIDAEMIA
     Route: 048
     Dates: start: 20131006, end: 20131007
  2. NOVOLOG (INSULIN ASPART) [Concomitant]
  3. LEVEMIR (INSULIN DETEMIR) [Concomitant]

REACTIONS (2)
  - Malaise [None]
  - Nausea [None]
